FAERS Safety Report 10541725 (Version 2)
Quarter: 2014Q4

REPORT INFORMATION
  Report Type: Spontaneous
  Country: US (occurrence: US)
  Receive Date: 20141024
  Receipt Date: 20141024
  Transmission Date: 20150529
  Serious: No
  Sender: FDA-Public Use
  Company Number: US-ALLERGAN-1409466US

PATIENT
  Age: 87 Year
  Sex: Female
  Weight: 61.22 kg

DRUGS (8)
  1. ALPHAGAN P [Suspect]
     Active Substance: BRIMONIDINE TARTRATE
     Indication: GLAUCOMA
     Dosage: 1 DROP, THREE TIMES A DAY
     Route: 047
     Dates: start: 20130805, end: 20140313
  2. AZOPT [Suspect]
     Active Substance: BRINZOLAMIDE
     Indication: INTRAOCULAR PRESSURE INCREASED
  3. COUMADINE [Concomitant]
     Active Substance: WARFARIN SODIUM
  4. RAMIPRIL. [Concomitant]
     Active Substance: RAMIPRIL
  5. PILOCARPINE HCL UNK [Suspect]
     Active Substance: PILOCARPINE HYDROCHLORIDE
     Indication: INTRAOCULAR PRESSURE INCREASED
  6. LUMIGAN [Concomitant]
     Active Substance: BIMATOPROST
  7. METFORMIN [Concomitant]
     Active Substance: METFORMIN HYDROCHLORIDE
  8. VERAPAMIL [Concomitant]
     Active Substance: VERAPAMIL HYDROCHLORIDE

REACTIONS (4)
  - Pain of skin [Recovered/Resolved with Sequelae]
  - Skin irritation [Recovered/Resolved with Sequelae]
  - Erythema [Recovered/Resolved with Sequelae]
  - Intraocular pressure increased [Unknown]
